FAERS Safety Report 7491544-7 (Version None)
Quarter: 2011Q2

REPORT INFORMATION
  Report Type: 
  Country: None (occurrence: None)
  Receive Date: 20110519
  Receipt Date: 20110506
  Transmission Date: 20111010
  Serious: Yes (Hospitalization)
  Sender: FDA-Public Use
  Company Number: US-ELI_LILLY_AND_COMPANY-US201105002559

PATIENT
  Sex: Female

DRUGS (5)
  1. ZYPREXA [Suspect]
     Dosage: 15 MG, QD
  2. RISPERIDONE [Concomitant]
     Indication: AFFECT LABILITY
     Dosage: UNK
     Dates: start: 20070101
  3. ZYPREXA [Suspect]
     Indication: SCHIZOPHRENIA
     Dosage: 20 MG, QD
     Dates: start: 20000301
  4. ZYPREXA [Suspect]
     Dosage: 22.5 MG, QD
     Dates: start: 20070301, end: 20070701
  5. ZYPREXA ZYDIS [Suspect]
     Indication: SCHIZOPHRENIA
     Dosage: 15 MG, QD
     Dates: start: 20070701

REACTIONS (7)
  - WRONG TECHNIQUE IN DRUG USAGE PROCESS [None]
  - DRUG DOSE OMISSION [None]
  - HOSPITALISATION [None]
  - ADVERSE EVENT [None]
  - OVERDOSE [None]
  - DEMENTIA [None]
  - HYPOPHAGIA [None]
